FAERS Safety Report 6438177-9 (Version None)
Quarter: 2009Q4

REPORT INFORMATION
  Report Type: 
  Country: None (occurrence: None)
  Receive Date: 20091112
  Receipt Date: 20091013
  Transmission Date: 20100525
  Serious: No
  Sender: FDA-Public Use
  Company Number: US-BAYER-200915619BCC

PATIENT
  Age: 77 Year
  Sex: Female
  Weight: 56 kg

DRUGS (6)
  1. ALEVE [Suspect]
     Indication: ARTHRALGIA
     Dosage: TOTAL DAILY DOSE: 440 MG  UNIT DOSE: 220 MG
     Route: 048
  2. FOSAMAX [Concomitant]
     Route: 065
  3. VITAMIN D [Concomitant]
     Route: 065
  4. MULTI-VITAMIN [Concomitant]
     Route: 065
  5. CALCIUM 600MG WITH VITAMIN D [Concomitant]
     Route: 065
  6. FLUTAMIDE [Concomitant]
     Route: 045

REACTIONS (1)
  - ABDOMINAL DISCOMFORT [None]
